FAERS Safety Report 14706615 (Version 4)
Quarter: 2018Q2

REPORT INFORMATION
  Report Type: Spontaneous
  Country: DE (occurrence: DE)
  Receive Date: 20180402
  Receipt Date: 20180525
  Transmission Date: 20180711
  Serious: Yes (Disabling, Other)
  Sender: FDA-Public Use
  Company Number: DE-009507513-1802DEU013348

PATIENT
  Age: 56 Year
  Sex: Male
  Weight: 92 kg

DRUGS (7)
  1. ISENTRESS [Suspect]
     Active Substance: RALTEGRAVIR POTASSIUM
     Indication: HIV INFECTION
     Dosage: 400 MG, UNK
     Route: 065
     Dates: start: 2007
  2. ISENTRESS [Suspect]
     Active Substance: RALTEGRAVIR POTASSIUM
     Dosage: 1 TABLET (400MG) TWIVE PER DAY
     Route: 048
     Dates: start: 20170926, end: 20171014
  3. DESCOVY [Suspect]
     Active Substance: EMTRICITABINE\TENOFOVIR ALAFENAMIDE FUMARATE
     Dosage: 1 TABLET PER DAY
     Route: 048
     Dates: start: 201605
  4. ISENTRESS [Suspect]
     Active Substance: RALTEGRAVIR POTASSIUM
     Dosage: 400 MG, Q12H
     Route: 065
     Dates: start: 2017
  5. ATORVASTATIN [Concomitant]
     Active Substance: ATORVASTATIN
     Indication: BLOOD CHOLESTEROL INCREASED
     Dosage: ONCE PER DAY
     Dates: start: 201711
  6. ISENTRESS [Suspect]
     Active Substance: RALTEGRAVIR POTASSIUM
     Dosage: 1 TABLET TWICE PER DAY
     Route: 048
     Dates: start: 201802
  7. DESCOVY [Suspect]
     Active Substance: EMTRICITABINE\TENOFOVIR ALAFENAMIDE FUMARATE
     Indication: HIV INFECTION
     Dosage: 1 DF, UNK
     Route: 065
     Dates: start: 2016

REACTIONS (9)
  - Somnolence [Unknown]
  - Fatigue [Recovering/Resolving]
  - Suspected counterfeit product [Unknown]
  - Dizziness [Recovering/Resolving]
  - Fatigue [Unknown]
  - Viral load increased [Recovering/Resolving]
  - Dizziness [Unknown]
  - CD4 lymphocytes decreased [Recovering/Resolving]
  - Viral load increased [Unknown]

NARRATIVE: CASE EVENT DATE: 20170926
